FAERS Safety Report 11757102 (Version 1)
Quarter: 2015Q4

REPORT INFORMATION
  Report Type: Spontaneous
  Country: US (occurrence: None)
  Receive Date: 20151119
  Receipt Date: 20151119
  Transmission Date: 20160304
  Serious: Yes (Death, Hospitalization)
  Sender: FDA-Public Use
  Company Number: None

PATIENT
  Age: 80 Year
  Sex: Male
  Weight: 75.8 kg

DRUGS (3)
  1. SIMVASTATIN. [Concomitant]
     Active Substance: SIMVASTATIN
  2. PEMBROLIZUMAB 100MG/4ML MERCK [Suspect]
     Active Substance: PEMBROLIZUMAB
     Indication: INVESTIGATION
     Dosage: EVERY 3 WEEKS
     Route: 042
     Dates: start: 20151030, end: 20151030
  3. LEVOTHYROXINE. [Concomitant]
     Active Substance: LEVOTHYROXINE

REACTIONS (2)
  - Mental status changes [None]
  - Autoimmune hepatitis [None]

NARRATIVE: CASE EVENT DATE: 20151114
